FAERS Safety Report 8281493-9 (Version None)
Quarter: 2012Q2

REPORT INFORMATION
  Report Type: 
  Country: None (occurrence: None)
  Receive Date: 20120413
  Receipt Date: 20120403
  Transmission Date: 20120825
  Serious: Yes (Other)
  Sender: FDA-Public Use
  Company Number: US-PFIZER INC-2012085194

PATIENT
  Sex: Female

DRUGS (1)
  1. CELEBREX [Suspect]
     Dosage: 200 MG, QD
     Route: 048

REACTIONS (14)
  - URINARY TRACT INFECTION [None]
  - MYELODYSPLASTIC SYNDROME [None]
  - HYPOTHYROIDISM [None]
  - IRRITABLE BOWEL SYNDROME [None]
  - ANAEMIA [None]
  - INTERVERTEBRAL DISC DEGENERATION [None]
  - CHRONIC FATIGUE SYNDROME [None]
  - POLYP [None]
  - FIBROMYALGIA [None]
  - DIARRHOEA [None]
  - OSTEOARTHRITIS [None]
  - BREAST CANCER FEMALE [None]
  - COUGH [None]
  - GASTROOESOPHAGEAL REFLUX DISEASE [None]
